FAERS Safety Report 16765986 (Version 1)
Quarter: 2019Q3

REPORT INFORMATION
  Report Type: Spontaneous
  Country: AU (occurrence: AU)
  Receive Date: 20190903
  Receipt Date: 20190903
  Transmission Date: 20191005
  Serious: Yes (Other)
  Sender: FDA-Public Use
  Company Number: AU-SA-2019SA239918

PATIENT
  Age: 70 Year
  Sex: Female

DRUGS (2)
  1. ENOXAPARIN SODIUM. [Suspect]
     Active Substance: ENOXAPARIN SODIUM
     Dosage: UNK
  2. TICAGRELOR. [Suspect]
     Active Substance: TICAGRELOR
     Dosage: UNK

REACTIONS (2)
  - Haemorrhage intracranial [Unknown]
  - Chest pain [Unknown]

NARRATIVE: CASE EVENT DATE: 20181230
